FAERS Safety Report 4654040-8 (Version None)
Quarter: 2005Q2

REPORT INFORMATION
  Report Type: 
  Country: None (occurrence: None)
  Receive Date: 20050504
  Receipt Date: 20050420
  Transmission Date: 20051028
  Serious: Yes (Other)
  Sender: FDA-Public Use
  Company Number: FR-2005-0005873

PATIENT
  Age: 32 Year
  Sex: Female

DRUGS (2)
  1. BETASERON [Suspect]
     Indication: MULTIPLE SCLEROSIS
     Dosage: 250 ?G,EVERY 2D, SUBCUTANEOUS
     Route: 058
     Dates: start: 19960601, end: 19980101
  2. DOLIPRANE [Concomitant]

REACTIONS (3)
  - DEREALISATION [None]
  - HALLUCINATION [None]
  - INFLUENZA LIKE ILLNESS [None]
